FAERS Safety Report 13682258 (Version 2)
Quarter: 2017Q3

REPORT INFORMATION
  Report Type: Spontaneous
  Country: JP (occurrence: JP)
  Receive Date: 20170623
  Receipt Date: 20170720
  Transmission Date: 20171127
  Serious: Yes (Hospitalization)
  Sender: FDA-Public Use
  Company Number: JP-PFIZER INC-2017227340

PATIENT
  Age: 52 Year
  Sex: Female
  Weight: 59 kg

DRUGS (7)
  1. SPIRONOLACTONE. [Concomitant]
     Active Substance: SPIRONOLACTONE
  2. REVATIO [Suspect]
     Active Substance: SILDENAFIL CITRATE
     Indication: PULMONARY HYPERTENSION
     Dosage: 20 MG, 2X/DAY
     Route: 048
  3. LUPRAC [Concomitant]
     Active Substance: TORSEMIDE
  4. REVATIO [Suspect]
     Active Substance: SILDENAFIL CITRATE
     Dosage: 900 MG, SINGLE
     Route: 048
     Dates: start: 20170522, end: 20170522
  5. TRACLEER [Suspect]
     Active Substance: BOSENTAN
     Dosage: 170 TABLETS, SINGLE
     Route: 048
     Dates: start: 20170522, end: 20170522
  6. TRACLEER [Suspect]
     Active Substance: BOSENTAN
     Indication: PULMONARY HYPERTENSION
     Dosage: 62.5 MG, 2X/DAY
     Route: 048
  7. ETIZOLAM [Concomitant]
     Active Substance: ETIZOLAM
     Dosage: 3 MG, 3X/DAY
     Route: 048

REACTIONS (3)
  - Visual field defect [Recovering/Resolving]
  - Hypotension [Recovered/Resolved]
  - Intentional overdose [Recovering/Resolving]

NARRATIVE: CASE EVENT DATE: 20170522
